FAERS Safety Report 25564109 (Version 3)
Quarter: 2025Q3

REPORT INFORMATION
  Report Type: Spontaneous
  Country: CA (occurrence: CA)
  Receive Date: 20250716
  Receipt Date: 20250915
  Transmission Date: 20251020
  Serious: Yes (Death)
  Sender: DAIICHI
  Company Number: CA-AstraZeneca-CH-00909159A

PATIENT
  Sex: Male

DRUGS (1)
  1. TRASTUZUMAB DERUXTECAN [Suspect]
     Active Substance: TRASTUZUMAB DERUXTECAN
     Indication: Metastatic neoplasm
     Route: 065

REACTIONS (2)
  - Ill-defined disorder [Fatal]
  - Off label use [Unknown]
